FAERS Safety Report 4334141-4 (Version None)
Quarter: 2004Q2

REPORT INFORMATION
  Report Type: 
  Country: None (occurrence: None)
  Receive Date: 20040402
  Receipt Date: 20040325
  Transmission Date: 20050107
  Serious: Yes (Life-Threatening, Hospitalization)
  Sender: FDA-Public Use
  Company Number: 2004-03-1984

PATIENT
  Age: 40 Year
  Sex: Male

DRUGS (1)
  1. CELESTONE SOLUSPAN [Suspect]
     Dosage: INTRAMUSCULAR
     Route: 030
     Dates: start: 20040325, end: 20040325

REACTIONS (1)
  - ANAPHYLACTIC SHOCK [None]
